FAERS Safety Report 7024081-4 (Version None)
Quarter: 2010Q4

REPORT INFORMATION
  Report Type: 
  Country: None (occurrence: None)
  Receive Date: 20101001
  Receipt Date: 20100924
  Transmission Date: 20110411
  Serious: Yes (Other)
  Sender: FDA-Public Use
  Company Number: US-JNJFOC-20100907250

PATIENT
  Sex: Female
  Weight: 51.71 kg

DRUGS (8)
  1. DURAGESIC-100 [Suspect]
     Indication: PAIN
     Route: 062
  2. SANDOZ FENTANYL TRANSDERMAL SYSTEM [Suspect]
     Indication: PAIN
     Route: 062
  3. SANDOZ FENTANYL TRANSDERMAL SYSTEM [Suspect]
     Indication: FIBROMYALGIA
     Route: 062
  4. SANDOZ FENTANYL TRANSDERMAL SYSTEM [Suspect]
     Dosage: NDC: 0781-7244-55
     Route: 062
  5. SANDOZ FENTANYL TRANSDERMAL SYSTEM [Suspect]
     Dosage: NDC: 0781-7244-55
     Route: 062
  6. BONIVA [Concomitant]
     Indication: OSTEOPOROSIS
     Route: 048
  7. RANITIDINE [Concomitant]
     Route: 048
  8. ASPIRIN [Concomitant]
     Indication: PROPHYLAXIS
     Route: 048

REACTIONS (11)
  - BUNION [None]
  - DEPRESSION [None]
  - DRUG INEFFECTIVE [None]
  - DRUG PRESCRIBING ERROR [None]
  - EXOSTOSIS [None]
  - FATIGUE [None]
  - FEELING ABNORMAL [None]
  - HEADACHE [None]
  - INAPPROPRIATE SCHEDULE OF DRUG ADMINISTRATION [None]
  - PRODUCT QUALITY ISSUE [None]
  - WITHDRAWAL SYNDROME [None]
